FAERS Safety Report 10390741 (Version 1)
Quarter: 2014Q3

REPORT INFORMATION
  Report Type: Spontaneous
  Country: ES (occurrence: None)
  Receive Date: 20140814
  Receipt Date: 20140814
  Transmission Date: 20150326
  Serious: Yes (Death)
  Sender: FDA-Public Use
  Company Number: 2014ES01030

PATIENT
  Age: 76 Year
  Sex: Female

DRUGS (3)
  1. PACLITAXEL (PACLITAXEL) [Suspect]
     Active Substance: PACLITAXEL
     Indication: OVARIAN CANCER
     Dosage: UNK
  2. CARBOPLATIN (CARBOPLATIN) INJECTION [Suspect]
     Active Substance: CARBOPLATIN
     Indication: OVARIAN CANCER
  3. CISPLATIN (CISPLATIN) [Suspect]
     Active Substance: CISPLATIN
     Indication: OVARIAN CANCER
     Dosage: 75MG/M2 OVER 60MIN MAINTAINING A CONSTANT INTRA-ABDOMINAL TEMPERATURE OF 42 DEGREE CELSIUS

REACTIONS (1)
  - Death [None]
